FAERS Safety Report 22687018 (Version 4)
Quarter: 2023Q4

REPORT INFORMATION
  Report Type: Spontaneous
  Country: US (occurrence: US)
  Receive Date: 20230710
  Receipt Date: 20231020
  Transmission Date: 20240109
  Serious: Yes (Hospitalization, Other)
  Sender: FDA-Public Use
  Company Number: US-GLAXOSMITHKLINE-US2023AMR090368

PATIENT

DRUGS (17)
  1. LAMICTAL [Suspect]
     Active Substance: LAMOTRIGINE
     Indication: Headache
     Dosage: UNK
  2. XIIDRA [Concomitant]
     Active Substance: LIFITEGRAST
     Indication: Product used for unknown indication
     Dosage: UNK
  3. TYLENOL [Concomitant]
     Active Substance: ACETAMINOPHEN
     Indication: Pain
     Dosage: UNK, QID
  4. VITAMIN C [Concomitant]
     Active Substance: ASCORBIC ACID
     Indication: Product used for unknown indication
     Dosage: 1 DF, BID
     Route: 048
  5. CHOLECALCIFEROL [Concomitant]
     Active Substance: CHOLECALCIFEROL
     Indication: Product used for unknown indication
     Dosage: 5 DF, QD (5000 UNITS BY NG TUBE ROUTE)
  6. PREMARIN [Concomitant]
     Active Substance: ESTROGENS, CONJUGATED
     Indication: Product used for unknown indication
     Dosage: 0.5 MG, QD
     Route: 067
  7. VALIUM [Concomitant]
     Active Substance: DIAZEPAM
     Indication: Product used for unknown indication
     Dosage: 1 DF, BID
     Route: 048
  8. MONODOX [Concomitant]
     Active Substance: DOXYCYCLINE
     Indication: Product used for unknown indication
     Dosage: 1 DF, BID
     Route: 048
  9. SYNALAR (FLUOCINOLONE ACETONIDE) [Concomitant]
     Indication: Product used for unknown indication
     Dosage: UNK USE A SMALL AMOUNT AS DIRECTED
  10. FOLVITE [Concomitant]
     Active Substance: FOLIC ACID
     Indication: Product used for unknown indication
     Dosage: 1 DF, QD NG TUBE ROUTE
  11. NEURONTIN [Concomitant]
     Active Substance: GABAPENTIN
     Indication: Product used for unknown indication
     Dosage: 6 ML, TID
     Route: 048
  12. MOTRIN [Concomitant]
     Active Substance: IBUPROFEN
     Indication: Pain
     Dosage: 30 ML, QID
     Route: 048
  13. LOPRESSOR [Concomitant]
     Active Substance: METOPROLOL TARTRATE
     Indication: Product used for unknown indication
     Dosage: 1 DF, TID
  14. MICONAZOLE 3 [Concomitant]
     Active Substance: MICONAZOLE NITRATE
     Indication: Product used for unknown indication
     Dosage: UNK
  15. BACTROBAN [Concomitant]
     Active Substance: MUPIROCIN\MUPIROCIN CALCIUM
     Indication: Product used for unknown indication
     Dosage: 1 APPLICATION SMALL AMOUNT AS DIRECTED, BID
     Route: 061
  16. PERCOCET [Concomitant]
     Active Substance: ACETAMINOPHEN\OXYCODONE HYDROCHLORIDE
     Indication: Pain
     Dosage: 1 DF, QD AS NEEDED 5-325 MG TABLET
     Route: 048
  17. THIAMINE [Concomitant]
     Active Substance: THIAMINE
     Indication: Product used for unknown indication
     Dosage: 1 DF, QD
     Route: 048

REACTIONS (33)
  - Stevens-Johnson syndrome [Unknown]
  - Suicidal ideation [Unknown]
  - Respiratory failure [Unknown]
  - Toxic epidermal necrolysis [Unknown]
  - SJS-TEN overlap [Unknown]
  - Symblepharon [Unknown]
  - Major depression [Unknown]
  - Eye irritation [Unknown]
  - Photophobia [Unknown]
  - Suspected COVID-19 [Unknown]
  - Vertigo [Unknown]
  - Dry skin [Unknown]
  - Post inflammatory pigmentation change [Unknown]
  - Pigmentation disorder [Unknown]
  - Headache [Unknown]
  - Neck pain [Unknown]
  - Pain [Unknown]
  - Rash [Unknown]
  - Exertional headache [Unknown]
  - Dry eye [Not Recovered/Not Resolved]
  - Dermatitis allergic [Unknown]
  - Drug hypersensitivity [Unknown]
  - Depression [Unknown]
  - Dysuria [Unknown]
  - Pyrexia [Unknown]
  - Hypersensitivity [Unknown]
  - Intentional overdose [Unknown]
  - Leukocytosis [Unknown]
  - Food allergy [Unknown]
  - Rash [Unknown]
  - Urinary tract infection [Unknown]
  - Visual acuity reduced [Unknown]
  - Conjunctival scar [Unknown]

NARRATIVE: CASE EVENT DATE: 20190910
